FAERS Safety Report 5097389-X (Version None)
Quarter: 2006Q3

REPORT INFORMATION
  Report Type: 
  Country: None (occurrence: None)
  Receive Date: 20060906
  Receipt Date: 20060814
  Transmission Date: 20061208
  Serious: Yes (Hospitalization)
  Sender: FDA-Public Use
  Company Number: JP-SANOFI-SYNTHELABO-D01200603653

PATIENT
  Sex: Male
  Weight: 69.8 kg

DRUGS (2)
  1. TRIAZOLAM [Concomitant]
     Indication: INSOMNIA
     Route: 065
     Dates: start: 20060401, end: 20060714
  2. SL770499 [Suspect]
     Indication: BENIGN PROSTATIC HYPERPLASIA
     Route: 048
     Dates: start: 20060729, end: 20060811

REACTIONS (1)
  - BIPOLAR I DISORDER [None]
